FAERS Safety Report 15849047 (Version 4)
Quarter: 2019Q2

REPORT INFORMATION
  Report Type: Spontaneous
  Country: JP (occurrence: JP)
  Receive Date: 20190121
  Receipt Date: 20190412
  Transmission Date: 20190711
  Serious: Yes (Death, Other)
  Sender: FDA-Public Use
  Company Number: JP-BRISTOL-MYERS SQUIBB COMPANY-BMS-2019-004112

PATIENT
  Age: 31 Year
  Sex: Male
  Weight: 49.5 kg

DRUGS (7)
  1. CETUXIMAB. [Concomitant]
     Active Substance: CETUXIMAB
     Indication: HEAD AND NECK CANCER
     Dosage: UNK
     Route: 065
     Dates: start: 20180216, end: 20180726
  2. OPDIVO [Suspect]
     Active Substance: NIVOLUMAB
     Indication: PRODUCT USED FOR UNKNOWN INDICATION
     Dosage: 153 MILLIGRAM
     Route: 041
     Dates: start: 20180201, end: 20180201
  3. OPDIVO [Suspect]
     Active Substance: NIVOLUMAB
     Indication: HEAD AND NECK CANCER
     Dosage: 148 MG
     Route: 041
     Dates: start: 20171205, end: 20171205
  4. PACLITAXEL. [Concomitant]
     Active Substance: PACLITAXEL
     Indication: HEAD AND NECK CANCER
     Dosage: UNK
     Route: 065
     Dates: start: 20180216, end: 20180726
  5. DECADRON                           /00016002/ [Suspect]
     Active Substance: DEXAMETHASONE
     Indication: LARYNGEAL OEDEMA
     Dosage: 1 DF = 0.5 TO 4 MG/DAY
     Route: 048
     Dates: start: 20180214, end: 20180515
  6. OPDIVO [Suspect]
     Active Substance: NIVOLUMAB
     Indication: PRODUCT USED FOR UNKNOWN INDICATION
     Dosage: 152 MILLIGRAM
     Route: 041
     Dates: start: 20171220, end: 20171220
  7. OPDIVO [Suspect]
     Active Substance: NIVOLUMAB
     Indication: PRODUCT USED FOR UNKNOWN INDICATION
     Dosage: 150 MILLIGRAM
     Route: 041
     Dates: start: 20180104, end: 20180118

REACTIONS (10)
  - Malignant neoplasm progression [Fatal]
  - Laryngeal oedema [Recovered/Resolved]
  - Dysphagia [Unknown]
  - Pyrexia [Recovered/Resolved]
  - Ear canal stenosis [Recovering/Resolving]
  - Decreased appetite [Unknown]
  - Sepsis [Recovered/Resolved]
  - Acne [Unknown]
  - Malaise [Unknown]
  - Epistaxis [Recovering/Resolving]

NARRATIVE: CASE EVENT DATE: 20171205
